FAERS Safety Report 5352102-3 (Version None)
Quarter: 2007Q2

REPORT INFORMATION
  Report Type: 
  Country: None (occurrence: None)
  Receive Date: 20070607
  Receipt Date: 20070529
  Transmission Date: 20071010
  Serious: Yes (Hospitalization, Other)
  Sender: FDA-Public Use
  Company Number: 163-21880-06120183

PATIENT
  Age: 50 Year
  Sex: Female

DRUGS (9)
  1. REVLIMID [Suspect]
     Indication: MULTIPLE MYELOMA
     Dosage: 20 MG, 2 IN 1 D, ORAL
     Route: 048
     Dates: start: 20061008, end: 20061210
  2. COREG [Concomitant]
  3. ACCUPRIL [Concomitant]
  4. BUMEX [Concomitant]
  5. NAPROSYN [Concomitant]
  6. NASONEX [Concomitant]
  7. DARVOCET [Concomitant]
  8. DURAGESIC-100 [Concomitant]
  9. DECADRON [Concomitant]

REACTIONS (7)
  - BACK DISORDER [None]
  - CAUDA EQUINA SYNDROME [None]
  - DISEASE PROGRESSION [None]
  - MULTIPLE MYELOMA [None]
  - POST PROCEDURAL INFECTION [None]
  - SEPSIS [None]
  - SPINAL CORD COMPRESSION [None]
